FAERS Safety Report 9352039 (Version 1)
Quarter: 2013Q2

REPORT INFORMATION
  Report Type: Spontaneous
  Country: NL (occurrence: NL)
  Receive Date: 20130617
  Receipt Date: 20130617
  Transmission Date: 20140414
  Serious: Yes (Other)
  Sender: FDA-Public Use
  Company Number: PHHY2012NL112469

PATIENT
  Age: 28 Year
  Sex: Male

DRUGS (2)
  1. RITALIN [Suspect]
     Indication: ATTENTION DEFICIT/HYPERACTIVITY DISORDER
     Dosage: UNK UKN, UNK
  2. RITALIN [Suspect]
     Dosage: 20 DF, ONCE/SINGLE

REACTIONS (9)
  - Physical assault [Unknown]
  - Drug abuse [Unknown]
  - Drug dependence [Unknown]
  - Sexually inappropriate behaviour [Unknown]
  - Suicidal ideation [Unknown]
  - Fall [Unknown]
  - Mobility decreased [Unknown]
  - Aggression [Unknown]
  - Incorrect route of drug administration [Unknown]
